FAERS Safety Report 4935393-X (Version None)
Quarter: 2006Q1

REPORT INFORMATION
  Report Type: 
  Country: None (occurrence: None)
  Receive Date: 20060307
  Receipt Date: 20050729
  Transmission Date: 20060701
  Serious: Yes (Other)
  Sender: FDA-Public Use
  Company Number: US-GLAXOSMITHKLINE-A0568322A

PATIENT
  Age: 33 Year
  Sex: Female

DRUGS (7)
  1. REQUIP [Suspect]
     Indication: RESTLESS LEGS SYNDROME
     Dosage: .5MG UNKNOWN
     Route: 048
     Dates: start: 20050315
  2. LEXAPRO [Concomitant]
     Indication: DEPRESSION
     Route: 048
  3. SINEMET [Concomitant]
     Indication: RESTLESS LEGS SYNDROME
     Dosage: 2TAB PER DAY
     Route: 048
     Dates: end: 20050422
  4. ADVAIR DISKUS 100/50 [Concomitant]
     Indication: ASTHMA
     Route: 055
  5. DEPO-PROVERA [Concomitant]
  6. PREVACID [Concomitant]
     Route: 048
  7. CLARITIN [Concomitant]
     Indication: MULTIPLE ALLERGIES
     Route: 048

REACTIONS (2)
  - IRRITABILITY [None]
  - MANIA [None]
